FAERS Safety Report 14526486 (Version 1)
Quarter: 2018Q1

REPORT INFORMATION
  Report Type: Other
  Country: None (occurrence: MX)
  Receive Date: 20180213
  Receipt Date: 20180213
  Transmission Date: 20180509
  Serious: Yes (Other)
  Sender: FDA-Public Use
  Company Number: MX-MEDAC PHARMA, INC.-2041869

PATIENT
  Age: 47 Year
  Sex: Female

DRUGS (11)
  1. TOCILIZUMAB. [Concomitant]
     Active Substance: TOCILIZUMAB
  2. ERTAPENEM. [Concomitant]
     Active Substance: ERTAPENEM SODIUM
  3. INFLIXIMAB [Concomitant]
     Active Substance: INFLIXIMAB
  4. SULFASALAZINE. [Concomitant]
     Active Substance: SULFASALAZINE
  5. ACETAMINOPHEN. [Concomitant]
     Active Substance: ACETAMINOPHEN
  6. METHOTREXATE. [Suspect]
     Active Substance: METHOTREXATE
     Indication: RHEUMATOID ARTHRITIS
  7. OMEPRAZOLE. [Concomitant]
     Active Substance: OMEPRAZOLE
  8. FOLIC ACID. [Concomitant]
     Active Substance: FOLIC ACID
  9. INDOMETACIN [Concomitant]
     Active Substance: INDOMETHACIN
  10. SULINDAC. [Concomitant]
     Active Substance: SULINDAC
  11. PREDNISONE. [Concomitant]
     Active Substance: PREDNISONE

REACTIONS (7)
  - Platelet count decreased [Recovering/Resolving]
  - White blood cell count decreased [Recovering/Resolving]
  - Mucosal inflammation [Recovering/Resolving]
  - Hepatic function abnormal [Recovering/Resolving]
  - Nutritional condition abnormal [Recovering/Resolving]
  - Vitamin B12 abnormal [Recovering/Resolving]
  - Oral candidiasis [Recovering/Resolving]
